FAERS Safety Report 23884804 (Version 1)
Quarter: 2024Q2

REPORT INFORMATION
  Report Type: Spontaneous
  Country: US (occurrence: US)
  Receive Date: 20240522
  Receipt Date: 20240522
  Transmission Date: 20240717
  Serious: No
  Sender: FDA-Public Use
  Company Number: US-HALEON-2177011

PATIENT
  Sex: Female

DRUGS (1)
  1. TUMS CHEWY BITES TROPICAL FRUIT SMOOTHIE [Suspect]
     Active Substance: CALCIUM CARBONATE
     Indication: Product used for unknown indication

REACTIONS (1)
  - Exposure during pregnancy [Unknown]
